FAERS Safety Report 5134536-5 (Version None)
Quarter: 2006Q4

REPORT INFORMATION
  Report Type: 
  Country: None (occurrence: None)
  Receive Date: 20061025
  Receipt Date: 20061012
  Transmission Date: 20070319
  Serious: Yes (Hospitalization)
  Sender: FDA-Public Use
  Company Number: PHBS2006JP16084

PATIENT
  Age: 67 Year
  Sex: Female

DRUGS (3)
  1. VOLTAREN [Suspect]
     Indication: OSTEOARTHRITIS
     Route: 048
  2. MOBIC [Concomitant]
  3. ATARAX [Concomitant]

REACTIONS (3)
  - BLOOD PRESSURE DECREASED [None]
  - PULMONARY OEDEMA [None]
  - SHOCK [None]
